FAERS Safety Report 23354455 (Version 1)
Quarter: 2024Q1

REPORT INFORMATION
  Report Type: Other
  Country: BR (occurrence: None)
  Receive Date: 20240101
  Receipt Date: 20240101
  Transmission Date: 20240409
  Serious: Yes (Hospitalization)
  Sender: FDA-Public Use
  Company Number: BR-ROCHE-3480127

PATIENT
  Age: 46 Year
  Sex: Male
  Weight: 65 kg

DRUGS (1)
  1. OCREVUS [Suspect]
     Active Substance: OCRELIZUMAB
     Indication: Multiple sclerosis
     Route: 042
     Dates: start: 20211015

REACTIONS (6)
  - Immunodeficiency [Unknown]
  - Vitamin B complex deficiency [Unknown]
  - Infection [Unknown]
  - Hypertension [Unknown]
  - Urinary tract disorder [Unknown]
  - Prostatic disorder [Unknown]
